FAERS Safety Report 8861724 (Version 1)
Quarter: 2012Q4

REPORT INFORMATION
  Report Type: 
  Country: US (occurrence: US)
  Receive Date: 20121025
  Receipt Date: 20121025
  Transmission Date: 20130627
  Serious: No
  Sender: FDA-Public Use
  Company Number: US-AMGEN-USASP2012020398

PATIENT
  Age: 57 Year
  Sex: Male

DRUGS (13)
  1. ENBREL [Suspect]
     Indication: PRODUCT USED FOR UNKNOWN INDICATION
     Dosage: 50 mg, 2 times/wk
  2. CLOBETASOL E [Concomitant]
     Dosage: 0.05 %, UNK
  3. DOVONEX [Concomitant]
     Dosage: 0.005 %, UNK
  4. PRAVASTATIN [Concomitant]
     Dosage: 10 mg, UNK
  5. GLYBURIDE [Concomitant]
     Dosage: 1.25 mg, UNK
  6. GEMFIBROZIL [Concomitant]
     Dosage: 600 mg, UNK
  7. METFORMIN [Concomitant]
     Dosage: 500 mg, UNK
  8. CALCIUM +D                         /00188401/ [Concomitant]
  9. VITAMIN D /00107901/ [Concomitant]
     Dosage: 1000 IU, UNK
  10. FISH OIL [Concomitant]
  11. BABY ASPIRIN [Concomitant]
     Dosage: 81 mg, UNK
  12. GLUCOSAMINE + CHONDROITIN          /01430901/ [Concomitant]
  13. COQ-10 [Concomitant]
     Dosage: 100 mg, UNK

REACTIONS (1)
  - Muscle twitching [Unknown]
